FAERS Safety Report 6327081-2 (Version None)
Quarter: 2009Q3

REPORT INFORMATION
  Report Type: 
  Country: None (occurrence: None)
  Receive Date: 20090825
  Receipt Date: 20090703
  Transmission Date: 20100115
  Serious: Yes (Hospitalization)
  Sender: FDA-Public Use
  Company Number: JP-EISAI INC.-E2090-00500-SPO-JP

PATIENT
  Age: 7 Year
  Sex: Female

DRUGS (3)
  1. EXCEGRAN [Suspect]
     Indication: CONVULSION
     Dosage: UNKNOWN
     Route: 048
  2. FLUTICASONE [Concomitant]
  3. AMOXICILLIN [Concomitant]
     Indication: STREPTOCOCCAL INFECTION

REACTIONS (7)
  - ALANINE AMINOTRANSFERASE INCREASED [None]
  - DERMATITIS EXFOLIATIVE [None]
  - DRUG RASH WITH EOSINOPHILIA AND SYSTEMIC SYMPTOMS [None]
  - ERYTHEMA INFECTIOSUM [None]
  - HEPATIC FUNCTION ABNORMAL [None]
  - LYMPHOCYTE STIMULATION TEST POSITIVE [None]
  - STREPTOCOCCAL INFECTION [None]
